FAERS Safety Report 11009255 (Version 5)
Quarter: 2015Q3

REPORT INFORMATION
  Report Type: Spontaneous
  Country: US (occurrence: US)
  Receive Date: 20150410
  Receipt Date: 20150925
  Transmission Date: 20151125
  Serious: Yes (Other)
  Sender: FDA-Public Use
  Company Number: US-PFIZER INC-2015116011

PATIENT
  Age: 72 Year
  Sex: Female

DRUGS (4)
  1. IBRANCE [Suspect]
     Active Substance: PALBOCICLIB
     Dosage: 125 MG, DAILY
     Route: 048
     Dates: start: 20150313, end: 20150825
  2. LETROZOLE. [Suspect]
     Active Substance: LETROZOLE
     Dosage: UNK
  3. IBRANCE [Suspect]
     Active Substance: PALBOCICLIB
     Indication: BREAST CANCER
     Dosage: 125 MG, DAILY (DAY 1-21 Q 28 DAYS)
     Route: 048
     Dates: start: 20150314
  4. IBRANCE [Suspect]
     Active Substance: PALBOCICLIB
     Dosage: 125 MG, CYCLIC (D1-D21 Q28D)
     Route: 048
     Dates: start: 20150314, end: 20150909

REACTIONS (13)
  - Headache [Not Recovered/Not Resolved]
  - Paraesthesia [Unknown]
  - Dry mouth [Not Recovered/Not Resolved]
  - Pruritus generalised [Not Recovered/Not Resolved]
  - Alopecia [Unknown]
  - Neutropenia [Unknown]
  - Dizziness [Not Recovered/Not Resolved]
  - White blood cell count decreased [Unknown]
  - Pain in extremity [Unknown]
  - Colitis [Unknown]
  - Red blood cell count decreased [Unknown]
  - Fatigue [Unknown]
  - Dry eye [Unknown]

NARRATIVE: CASE EVENT DATE: 20150914
